FAERS Safety Report 20065171 (Version 1)
Quarter: 2021Q4

REPORT INFORMATION
  Report Type: Spontaneous
  Country: CL (occurrence: CL)
  Receive Date: 20211113
  Receipt Date: 20211113
  Transmission Date: 20220303
  Serious: Yes (Hospitalization)
  Sender: FDA-Public Use
  Company Number: CL-BoehringerIngelheim-2021-BI-137748

PATIENT
  Age: 69 Year
  Sex: Female

DRUGS (1)
  1. PRADAXA [Suspect]
     Active Substance: DABIGATRAN ETEXILATE MESYLATE
     Indication: Product used for unknown indication
     Dosage: 150 MG EVERY 12 HOURS
     Route: 065

REACTIONS (2)
  - Hernia [Unknown]
  - Abdominal pain [Unknown]
